FAERS Safety Report 17266005 (Version 9)
Quarter: 2021Q1

REPORT INFORMATION
  Report Type: Report from Study
  Country: US (occurrence: US)
  Receive Date: 20200114
  Receipt Date: 20210101
  Transmission Date: 20210419
  Serious: Yes (Hospitalization, Other)
  Sender: FDA-Public Use
  Company Number: NVSC2020US006280

PATIENT
  Age: 78 Year
  Sex: Female

DRUGS (4)
  1. BEOVU [Suspect]
     Active Substance: BROLUCIZUMAB-DBLL
     Indication: NEOVASCULAR AGE-RELATED MACULAR DEGENERATION
     Dosage: UNK
     Route: 047
     Dates: start: 20200108
  2. BEOVU [Suspect]
     Active Substance: BROLUCIZUMAB-DBLL
     Dosage: UNK
     Route: 047
  3. BEOVU [Suspect]
     Active Substance: BROLUCIZUMAB-DBLL
     Dosage: UNK
     Route: 047
  4. BEOVU [Suspect]
     Active Substance: BROLUCIZUMAB-DBLL
     Dosage: UNK
     Route: 047

REACTIONS (17)
  - Cough [Unknown]
  - Fatigue [Unknown]
  - Visual impairment [Unknown]
  - Asthenia [Unknown]
  - Memory impairment [Recovered/Resolved]
  - Dry throat [Unknown]
  - COVID-19 [Recovered/Resolved]
  - Eye irritation [Recovered/Resolved]
  - Arthritis [Unknown]
  - Eye pain [Recovered/Resolved]
  - Vision blurred [Unknown]
  - Haemorrhage [Unknown]
  - Arthropathy [Recovering/Resolving]
  - Stress [Unknown]
  - Emotional disorder [Unknown]
  - Ocular discomfort [Recovered/Resolved]
  - Visual acuity reduced [Unknown]

NARRATIVE: CASE EVENT DATE: 20200109
